FAERS Safety Report 23096232 (Version 1)
Quarter: 2023Q4

REPORT INFORMATION
  Report Type: Spontaneous
  Country: US (occurrence: US)
  Receive Date: 20231023
  Receipt Date: 20231023
  Transmission Date: 20240109
  Serious: Yes (Hospitalization)
  Sender: FDA-Public Use
  Company Number: US-MYLANLABS-2023M1108599

PATIENT
  Age: 58 Year
  Sex: Male

DRUGS (2)
  1. LENALIDOMIDE [Suspect]
     Active Substance: LENALIDOMIDE
     Indication: Plasma cell myeloma in remission
     Dosage: UNK
     Route: 065
  2. DEXAMETHASONE [Suspect]
     Active Substance: DEXAMETHASONE
     Indication: Giant cell arteritis
     Dosage: UNK
     Route: 065

REACTIONS (6)
  - Pasteurella infection [Unknown]
  - Sepsis pasteurella [Unknown]
  - Skin ulcer [Unknown]
  - Azotaemia [Unknown]
  - Hyperkalaemia [Unknown]
  - Metabolic acidosis [Unknown]
